FAERS Safety Report 7022895-8 (Version None)
Quarter: 2010Q3

REPORT INFORMATION
  Report Type: 
  Country: None (occurrence: None)
  Receive Date: 20100930
  Receipt Date: 20100902
  Transmission Date: 20110219
  Serious: Yes (Hospitalization)
  Sender: FDA-Public Use
  Company Number: DE-BAYER-201032129GPV

PATIENT
  Age: 58 Year
  Sex: Female

DRUGS (5)
  1. SORAFENIB [Suspect]
     Indication: HEPATIC NEOPLASM MALIGNANT
     Dosage: UNIT DOSE: 400 MG
     Route: 048
     Dates: start: 20100622
  2. SORAFENIB [Suspect]
     Route: 048
     Dates: start: 20100713, end: 20100714
  3. ERLOTINIB OR PLACEBO [Suspect]
     Indication: HEPATIC NEOPLASM MALIGNANT
     Route: 048
     Dates: start: 20100622
  4. RANITIDINE HCL [Concomitant]
     Indication: GASTRITIS
     Route: 048
     Dates: start: 20100615
  5. EFFORTIL [Concomitant]
     Indication: HYPOTENSION
     Route: 048
     Dates: start: 20100615

REACTIONS (2)
  - DIARRHOEA [None]
  - INFECTION [None]
